FAERS Safety Report 9959199 (Version 2)
Quarter: 2014Q1

REPORT INFORMATION
  Report Type: Report from Study
  Country: US (occurrence: US)
  Receive Date: 20140305
  Receipt Date: 20140305
  Transmission Date: 20141002
  Serious: No
  Sender: FDA-Public Use
  Company Number: US-ABBVIE-13P-163-1092287-00

PATIENT
  Age: 59 Year
  Sex: Female

DRUGS (24)
  1. HUMIRA [Suspect]
     Indication: RHEUMATOID ARTHRITIS
     Dates: start: 20130211
  2. METHOTREXATE [Concomitant]
     Indication: RHEUMATOID ARTHRITIS
  3. VITAMIN D [Concomitant]
     Indication: PRODUCT USED FOR UNKNOWN INDICATION
     Dosage: 1.5 TABLETS
  4. ULTRAM ER [Concomitant]
     Indication: PRODUCT USED FOR UNKNOWN INDICATION
     Dosage: 300MG DAILY
  5. HYDROCHLOROTHIAZIDE [Concomitant]
     Indication: DIURETIC THERAPY
     Dosage: 25MG DAILY
  6. FOLIC ACID [Concomitant]
     Indication: PRODUCT USED FOR UNKNOWN INDICATION
     Dosage: 1MG DAILY
  7. AMLODIPINE [Concomitant]
     Indication: HYPERTENSION
     Dosage: 10MG DAILY
  8. ETODOLAC [Concomitant]
     Indication: PAIN
  9. ETODOLAC [Concomitant]
     Indication: INFLAMMATION
  10. LYRICA [Concomitant]
     Indication: NEURALGIA
  11. POTASSIUM [Concomitant]
     Indication: PRODUCT USED FOR UNKNOWN INDICATION
  12. SEROQUEL [Concomitant]
     Indication: DEPRESSION
     Dosage: IN THE EVENING
  13. SEROQUEL [Concomitant]
     Indication: BIPOLAR DISORDER
  14. BUSPAR [Concomitant]
     Indication: DEPRESSION
     Dosage: 30MG IN THE MORNING, 45 MG IN THE EVENING
  15. BUSPAR [Concomitant]
     Indication: BIPOLAR DISORDER
  16. OMEPRAZOLE DR [Concomitant]
     Indication: GASTRITIS
     Dosage: 40MG DAILY
  17. HYDROXYCHLOROQUINE [Concomitant]
     Indication: RHEUMATOID ARTHRITIS
  18. HYDROXYCHLOROQUINE [Concomitant]
     Indication: OSTEOARTHRITIS
  19. NOVOLOG [Concomitant]
     Indication: DIABETES MELLITUS
     Dosage: IN THE MORNING AND IN THE EVENING.
  20. LANTUS [Concomitant]
     Indication: PRODUCT USED FOR UNKNOWN INDICATION
     Dosage: IN THE EVENING
  21. CHOLESTYRAMINE [Concomitant]
     Indication: DYSPEPSIA
     Dosage: 1 SCOOP IN WATER AT BEDTIME
  22. PROAIR [Concomitant]
     Indication: BRONCHITIS CHRONIC
     Route: 055
  23. FLUTICASONE [Concomitant]
     Indication: HYPERSENSITIVITY
     Route: 045
  24. CPAP MACHINE [Concomitant]
     Indication: SLEEP APNOEA SYNDROME

REACTIONS (5)
  - Bone disorder [Not Recovered/Not Resolved]
  - Arthralgia [Not Recovered/Not Resolved]
  - Pain in extremity [Not Recovered/Not Resolved]
  - Pain in extremity [Not Recovered/Not Resolved]
  - Pain in extremity [Not Recovered/Not Resolved]
